FAERS Safety Report 9729769 (Version 1)
Quarter: 2013Q4

REPORT INFORMATION
  Report Type: Spontaneous
  Country: US (occurrence: US)
  Receive Date: 20131204
  Receipt Date: 20131204
  Transmission Date: 20140711
  Serious: No
  Sender: FDA-Public Use
  Company Number: US-GILEAD-2009-0022285

PATIENT
  Sex: Female
  Weight: 46.72 kg

DRUGS (4)
  1. LETAIRIS [Suspect]
     Indication: PULMONARY ARTERIAL HYPERTENSION
     Route: 048
     Dates: start: 20080914
  2. REVATIO [Concomitant]
  3. ASPIRIN [Concomitant]
  4. VITAMIN C [Concomitant]

REACTIONS (1)
  - Hypotension [Unknown]
